FAERS Safety Report 9164328 (Version 1)
Quarter: 2013Q1

REPORT INFORMATION
  Report Type: Spontaneous
  Country: US (occurrence: None)
  Receive Date: 20130221
  Receipt Date: 20130221
  Transmission Date: 20140127
  Serious: Yes (Other)
  Sender: FDA-Public Use
  Company Number: AUR-APL-2013-01506

PATIENT
  Age: 9 Year
  Sex: Female

DRUGS (1)
  1. CIPROFLOXACIN [Suspect]
     Indication: ANTIBIOTIC PROPHYLAXIS
     Dosage: 200 MG GT BID, UNKNOWN

REACTIONS (6)
  - Pathogen resistance [None]
  - Purulent discharge [None]
  - Wound dehiscence [None]
  - Bacteroides test positive [None]
  - Morganella test positive [None]
  - Aeromonas test positive [None]
